FAERS Safety Report 25038596 (Version 1)
Quarter: 2025Q1

REPORT INFORMATION
  Report Type: Spontaneous
  Country: FR (occurrence: FR)
  Receive Date: 20250304
  Receipt Date: 20250304
  Transmission Date: 20250409
  Serious: Yes (Hospitalization)
  Sender: JOHNSON AND JOHNSON
  Company Number: None

PATIENT
  Age: 61 Year
  Sex: Male
  Weight: 69 kg

DRUGS (1)
  1. RYBREVANT [Suspect]
     Active Substance: AMIVANTAMAB-VMJW
     Indication: Neoplasm malignant
     Dates: start: 20250212, end: 20250212

REACTIONS (2)
  - Acute pulmonary oedema [Recovered/Resolved]
  - Pulmonary hypertensive crisis [Recovered/Resolved]

NARRATIVE: CASE EVENT DATE: 20250212
